FAERS Safety Report 5945983-3 (Version None)
Quarter: 2008Q4

REPORT INFORMATION
  Report Type: 
  Country: None (occurrence: None)
  Receive Date: 20081106
  Receipt Date: 20081022
  Transmission Date: 20090506
  Serious: Yes (Other)
  Sender: FDA-Public Use
  Company Number: 2008BI028916

PATIENT
  Sex: Male

DRUGS (3)
  1. ZEVALIN [Suspect]
     Indication: NON-HODGKIN'S LYMPHOMA
     Dosage: 1X; IV
     Route: 042
     Dates: start: 20080201, end: 20080201
  2. RITUXAN (CON.) [Concomitant]
  3. RITUXAN (PREV.) [Concomitant]

REACTIONS (3)
  - EXTRAVASATION [None]
  - SKIN GRAFT [None]
  - SKIN NECROSIS [None]
